FAERS Safety Report 15778083 (Version 2)
Quarter: 2023Q1

REPORT INFORMATION
  Report Type: Spontaneous
  Country: IT (occurrence: IT)
  Receive Date: 20181231
  Receipt Date: 20230329
  Transmission Date: 20230418
  Serious: Yes (Hospitalization, Other)
  Sender: FDA-Public Use
  Company Number: IT-002147023-PHHY2018IT193594

PATIENT

DRUGS (12)
  1. RUXOLITINIB [Suspect]
     Active Substance: RUXOLITINIB
     Indication: Autoinflammatory disease
     Dosage: 7.5 MG, BID (15 MG, QD)
     Route: 048
     Dates: start: 201612
  2. RUXOLITINIB [Suspect]
     Active Substance: RUXOLITINIB
     Dosage: 10 MG, BID (20 MG, QD)
     Route: 065
  3. RUXOLITINIB [Suspect]
     Active Substance: RUXOLITINIB
     Dosage: 7.5 MG, BID (MAINTAINED AT)
     Route: 065
  4. HYDROXYCHLOROQUINE [Concomitant]
     Active Substance: HYDROXYCHLOROQUINE
     Indication: Autoinflammatory disease
     Dosage: UNK
     Route: 065
  5. ABATACEPT [Concomitant]
     Active Substance: ABATACEPT
     Indication: Autoinflammatory disease
     Dosage: UNK
     Route: 065
  6. QUINACRINE [Concomitant]
     Active Substance: QUINACRINE
     Indication: Autoinflammatory disease
     Dosage: UNK
     Route: 065
  7. TRAMADOL [Concomitant]
     Active Substance: TRAMADOL
     Indication: Headache
     Dosage: UNK
     Route: 065
  8. RAMIPRIL [Concomitant]
     Active Substance: RAMIPRIL
     Indication: Product used for unknown indication
     Dosage: UNK
     Route: 065
  9. PREDNISONE [Concomitant]
     Active Substance: PREDNISONE
     Indication: Product used for unknown indication
     Dosage: UNK
     Route: 065
  10. CELECOXIB [Concomitant]
     Active Substance: CELECOXIB
     Indication: Product used for unknown indication
     Dosage: UNK
     Route: 065
  11. LANSOPRAZOLE [Concomitant]
     Active Substance: LANSOPRAZOLE
     Indication: Product used for unknown indication
     Dosage: UNK
     Route: 065
  12. CALCIUM [Concomitant]
     Active Substance: CALCIUM
     Indication: Product used for unknown indication
     Dosage: UNK
     Route: 065

REACTIONS (3)
  - Rebound effect [Unknown]
  - Product use in unapproved indication [Unknown]
  - Pulmonary arterial hypertension [Recovering/Resolving]
